FAERS Safety Report 10015865 (Version 4)
Quarter: 2014Q3

REPORT INFORMATION
  Report Type: Report from Study
  Country: ES (occurrence: ES)
  Receive Date: 20140317
  Receipt Date: 20140819
  Transmission Date: 20150326
  Serious: Yes (Life-Threatening, Hospitalization)
  Sender: FDA-Public Use
  Company Number: ES-GLAXOSMITHKLINE-B0783566A

PATIENT
  Age: 76 Year
  Sex: Male
  Weight: 72 kg

DRUGS (19)
  1. FUROSEMIDA [Concomitant]
     Active Substance: FUROSEMIDE
     Indication: DIURETIC THERAPY
     Route: 042
     Dates: start: 20120212, end: 20120212
  2. INSULIN [Concomitant]
     Active Substance: INSULIN NOS
     Indication: DIABETES MELLITUS
     Route: 058
     Dates: start: 20120212, end: 20120216
  3. ATROVENT [Concomitant]
     Active Substance: IPRATROPIUM BROMIDE
     Indication: CHRONIC OBSTRUCTIVE PULMONARY DISEASE
     Route: 055
     Dates: start: 2011, end: 20120412
  4. ADRENALINA [Concomitant]
     Indication: ARRHYTHMIA
     Dosage: 150MG PER DAY
     Route: 042
     Dates: start: 20120212, end: 20120212
  5. VOLUVEN [Concomitant]
     Active Substance: HYDROXYETHYL STARCH 130/0.4
     Indication: HYPOVOLAEMIA
     Route: 042
     Dates: start: 20120212, end: 20120212
  6. ATROVENT [Concomitant]
     Active Substance: IPRATROPIUM BROMIDE
     Indication: BRONCHOSPASM
     Route: 055
     Dates: start: 20120212, end: 20120213
  7. PANTOPRAZOLE [Concomitant]
     Active Substance: PANTOPRAZOLE SODIUM
     Indication: PROPHYLAXIS AGAINST GASTROINTESTINAL ULCER
     Dosage: 40MG PER DAY
     Route: 042
     Dates: start: 20120212, end: 20120215
  8. ENOXAPARIN SODIUM. [Concomitant]
     Active Substance: ENOXAPARIN SODIUM
     Indication: THROMBOSIS PROPHYLAXIS
     Dosage: 40MG PER DAY
     Route: 058
     Dates: start: 20120212, end: 20120221
  9. AMIODARONA [Concomitant]
     Active Substance: AMIODARONE
     Indication: TACHYARRHYTHMIA
     Route: 042
     Dates: start: 20120212, end: 20120212
  10. ANECTINE [Concomitant]
     Active Substance: SUCCINYLCHOLINE CHLORIDE
     Indication: ANAESTHETIC PREMEDICATION
     Route: 042
     Dates: start: 20120212, end: 20120212
  11. FENTANEST [Concomitant]
     Active Substance: FENTANYL CITRATE
     Indication: ANALGESIC THERAPY
     Route: 042
     Dates: start: 20120212, end: 20120212
  12. FENTANEST [Concomitant]
     Active Substance: FENTANYL CITRATE
     Indication: SEDATION
  13. OSELTAMIVIR [Concomitant]
     Active Substance: OSELTAMIVIR
     Indication: PNEUMONIA
     Dates: start: 20120212, end: 20120213
  14. FLUTICASONE FUROATE + VILANTEROL TRIFENATATE [Suspect]
     Active Substance: FLUTICASONE FUROATE\VILANTEROL TRIFENATATE
     Indication: CHRONIC OBSTRUCTIVE PULMONARY DISEASE
     Dates: start: 20111124, end: 20120212
  15. FLUTICASONE FUROATE + VILANTEROL TRIFENATATE [Suspect]
     Active Substance: FLUTICASONE FUROATE\VILANTEROL TRIFENATATE
     Dates: start: 20120216, end: 20120308
  16. LOBIVON [Concomitant]
     Active Substance: NEBIVOLOL HYDROCHLORIDE
     Indication: HYPERTENSION
     Dosage: 2.5MG PER DAY
     Route: 048
     Dates: start: 2008, end: 20120412
  17. KETAMINE [Concomitant]
     Active Substance: KETAMINE
     Indication: ANAESTHETIC PREMEDICATION
     Route: 042
     Dates: start: 20120212, end: 20120212
  18. SALBUTAMOL [Concomitant]
     Active Substance: ALBUTEROL
     Indication: CHRONIC OBSTRUCTIVE PULMONARY DISEASE
     Route: 055
     Dates: start: 20120212, end: 20120212
  19. SALBUTAMOL [Concomitant]
     Active Substance: ALBUTEROL
     Indication: BRONCHOSPASM
     Route: 055
     Dates: start: 20120212, end: 20120220

REACTIONS (2)
  - Pneumonia [Recovered/Resolved]
  - Atrial fibrillation [Recovered/Resolved]

NARRATIVE: CASE EVENT DATE: 20120212
